FAERS Safety Report 20732593 (Version 1)
Quarter: 2022Q2

REPORT INFORMATION
  Report Type: Spontaneous
  Country: US (occurrence: US)
  Receive Date: 20220420
  Receipt Date: 20220420
  Transmission Date: 20220721
  Serious: No
  Sender: FDA-Public Use
  Company Number: US-Teikoku Pharma USA-TPU2022-00319

PATIENT
  Sex: Female

DRUGS (2)
  1. LIDOCAINE PATCH [Suspect]
     Active Substance: LIDOCAINE
     Indication: Neck pain
     Dosage: 2-3 PATCHES A DAY
     Route: 061
  2. LIDOCAINE PATCH [Suspect]
     Active Substance: LIDOCAINE
     Indication: Pain in extremity

REACTIONS (2)
  - Ankle fracture [Unknown]
  - Drug ineffective for unapproved indication [Not Recovered/Not Resolved]
